FAERS Safety Report 7888525-8 (Version None)
Quarter: 2011Q4

REPORT INFORMATION
  Report Type: 
  Country: None (occurrence: None)
  Receive Date: 20111101
  Receipt Date: 20111017
  Transmission Date: 20120403
  Serious: Yes (Death, Life-Threatening, Hospitalization, Other)
  Sender: FDA-Public Use
  Company Number: 2011MA015271

PATIENT
  Age: 21 Year
  Sex: Female

DRUGS (1)
  1. METFORMIN HYDROCHLORIDE [Suspect]
     Indication: INTENTIONAL OVERDOSE
     Dosage: 100 GM;X1;PO
     Route: 048

REACTIONS (16)
  - TACHYCARDIA [None]
  - GENERAL PHYSICAL HEALTH DETERIORATION [None]
  - OVERDOSE [None]
  - HAEMODIALYSIS [None]
  - ABDOMINAL PAIN [None]
  - HYPOGLYCAEMIA [None]
  - ARRHYTHMIA [None]
  - CONVULSION [None]
  - VOMITING [None]
  - DIARRHOEA [None]
  - TOXICITY TO VARIOUS AGENTS [None]
  - BRADYARRHYTHMIA [None]
  - SOMNOLENCE [None]
  - METABOLIC ACIDOSIS [None]
  - HYPOVOLAEMIC SHOCK [None]
  - CARDIOVASCULAR DISORDER [None]
